FAERS Safety Report 13019343 (Version 2)
Quarter: 2016Q4

REPORT INFORMATION
  Report Type: Report from Study
  Country: None (occurrence: CA)
  Receive Date: 20161212
  Receipt Date: 20161213
  Transmission Date: 20170207
  Serious: Yes (Hospitalization)
  Sender: FDA-Public Use
  Company Number: CA-ABBVIE-16K-028-1762840-00

PATIENT
  Age: 24 Year
  Sex: Male
  Weight: 90 kg

DRUGS (4)
  1. HUMIRA [Suspect]
     Active Substance: ADALIMUMAB
     Indication: CROHN^S DISEASE
     Route: 058
     Dates: start: 20120917, end: 20160912
  2. HUMIRA [Suspect]
     Active Substance: ADALIMUMAB
     Route: 058
     Dates: start: 20160912
  3. IMURAN [Concomitant]
     Active Substance: AZATHIOPRINE
     Indication: CROHN^S DISEASE
     Dosage: VARIABLE
     Route: 048
     Dates: start: 20120123, end: 20120614
  4. METHOTREXATE. [Concomitant]
     Active Substance: METHOTREXATE
     Indication: CROHN^S DISEASE
     Dosage: VARIABLE
     Route: 048
     Dates: start: 20120614, end: 20120905

REACTIONS (7)
  - Abdominal distension [Unknown]
  - Enteritis [Unknown]
  - Escherichia bacteraemia [Unknown]
  - Pyrexia [Unknown]
  - Ileal stenosis [Unknown]
  - Decreased appetite [Unknown]
  - Crohn^s disease [Recovered/Resolved]

NARRATIVE: CASE EVENT DATE: 201609
